FAERS Safety Report 10152639 (Version 1)
Quarter: 2014Q2

REPORT INFORMATION
  Report Type: Spontaneous
  Country: GB (occurrence: GB)
  Receive Date: 20140505
  Receipt Date: 20140505
  Transmission Date: 20141212
  Serious: Yes (Other)
  Sender: FDA-Public Use
  Company Number: GB-B.I. PHARMACEUTICALS,INC./RIDGEFIELD-2014-BI-19706UK

PATIENT
  Age: 60 Year
  Sex: Male

DRUGS (1)
  1. PRADAXA [Suspect]
     Indication: PRODUCT USED FOR UNKNOWN INDICATION
     Dosage: 220 MG
     Route: 065

REACTIONS (5)
  - Arteriovenous malformation [Unknown]
  - Testicular swelling [Unknown]
  - Post procedural infection [Unknown]
  - Hernia [Unknown]
  - Hydrocephalus [Unknown]
